FAERS Safety Report 13913355 (Version 1)
Quarter: 2017Q3

REPORT INFORMATION
  Report Type: Spontaneous
  Country: US (occurrence: US)
  Receive Date: 20170828
  Receipt Date: 20170828
  Transmission Date: 20171127
  Serious: No
  Sender: FDA-Public Use
  Company Number: US-ROCHE-1130602

PATIENT
  Sex: Female
  Weight: 90.8 kg

DRUGS (2)
  1. NUTROPIN [Suspect]
     Active Substance: SOMATROPIN
     Indication: HYPOPITUITARISM
  2. NUTROPIN [Suspect]
     Active Substance: SOMATROPIN
     Indication: BLOOD GROWTH HORMONE DECREASED
     Route: 065
     Dates: start: 20020109

REACTIONS (4)
  - Tachycardia [Unknown]
  - Abscess [Unknown]
  - Skin hyperpigmentation [Recovering/Resolving]
  - Palpitations [Unknown]
